FAERS Safety Report 23849804 (Version 1)
Quarter: 2024Q2

REPORT INFORMATION
  Report Type: Spontaneous
  Country: US (occurrence: None)
  Receive Date: 20240513
  Receipt Date: 20240513
  Transmission Date: 20240716
  Serious: Yes (Hospitalization)
  Sender: FDA-Public Use
  Company Number: None

PATIENT
  Sex: Male

DRUGS (1)
  1. ABIRATERONE ACETATE [Suspect]
     Active Substance: ABIRATERONE ACETATE
     Indication: Prostate cancer
     Dosage: FREQUENCY : DAILY;?
     Route: 048
     Dates: start: 202404

REACTIONS (10)
  - Fatigue [None]
  - Diarrhoea [None]
  - Hot flush [None]
  - Pyrexia [None]
  - Chills [None]
  - Arthralgia [None]
  - Irregular breathing [None]
  - Chromaturia [None]
  - Pneumonia [None]
  - Heart rate increased [None]
